FAERS Safety Report 8002837-9 (Version None)
Quarter: 2011Q4

REPORT INFORMATION
  Report Type: 
  Country: None (occurrence: None)
  Receive Date: 20111222
  Receipt Date: 20101124
  Transmission Date: 20120403
  Serious: No
  Sender: FDA-Public Use
  Company Number: US-GLAXOSMITHKLINE-A0896404A

PATIENT
  Age: 64 Year
  Sex: Male

DRUGS (7)
  1. PLAVIX [Concomitant]
  2. SIMCOR [Concomitant]
  3. ALBUTEROL [Concomitant]
     Route: 055
  4. AVODART [Suspect]
     Indication: BENIGN PROSTATIC HYPERPLASIA
     Dosage: .5MG PER DAY
     Route: 048
     Dates: start: 20091101
  5. LISINOPRIL [Concomitant]
  6. RESTORIL [Concomitant]
  7. WARFARIN SODIUM [Concomitant]

REACTIONS (1)
  - MEDICATION RESIDUE [None]
